FAERS Safety Report 14746738 (Version 1)
Quarter: 2018Q2

REPORT INFORMATION
  Report Type: Spontaneous
  Country: US (occurrence: US)
  Receive Date: 20180411
  Receipt Date: 20180411
  Transmission Date: 20180711
  Serious: No
  Sender: FDA-Public Use
  Company Number: US-ENDO PHARMACEUTICALS INC-2017-002533

PATIENT
  Age: 47 Year
  Sex: Male
  Weight: 126.98 kg

DRUGS (17)
  1. AVEED [Suspect]
     Active Substance: TESTOSTERONE UNDECANOATE
     Dosage: UNK, ONCE
     Route: 030
     Dates: start: 20150316
  2. FLOMAX [Concomitant]
     Active Substance: TAMSULOSIN HYDROCHLORIDE
     Indication: BENIGN PROSTATIC HYPERPLASIA
  3. KETOROLAC [Concomitant]
     Active Substance: KETOROLAC\KETOROLAC TROMETHAMINE
     Indication: PAIN
  4. GLUCOSAMINE CHONDROITIN            /01430901/ [Concomitant]
     Indication: ARTHRITIS
  5. AVEED [Suspect]
     Active Substance: TESTOSTERONE UNDECANOATE
     Dosage: UNK, ONCE
     Route: 030
     Dates: start: 20161021
  6. AVEED [Suspect]
     Active Substance: TESTOSTERONE UNDECANOATE
     Indication: HYPOGONADISM
     Dosage: UNK, ONCE (DOSE PRIOR TO EVENTS)
     Route: 030
     Dates: start: 20170419
  7. AVEED [Suspect]
     Active Substance: TESTOSTERONE UNDECANOATE
     Dosage: UNK, ONCE
     Route: 030
     Dates: start: 20150106
  8. MULTIVITAMINS WITH FLUORIDE CHEWABLE TABLET .5MG/50ML [Concomitant]
     Indication: VITAMIN SUPPLEMENTATION
  9. AVEED [Suspect]
     Active Substance: TESTOSTERONE UNDECANOATE
     Dosage: UNK, ONCE
     Route: 030
     Dates: start: 20141024
  10. MELATONIN [Concomitant]
     Active Substance: MELATONIN
     Indication: PRODUCT USED FOR UNKNOWN INDICATION
  11. AVEED [Suspect]
     Active Substance: TESTOSTERONE UNDECANOATE
     Dosage: UNK, ONCE
     Route: 030
     Dates: start: 20150807
  12. AVEED [Suspect]
     Active Substance: TESTOSTERONE UNDECANOATE
     Dosage: UNK, ONCE
     Route: 030
     Dates: start: 20161130
  13. METFORMIN [Concomitant]
     Active Substance: METFORMIN HYDROCHLORIDE
     Indication: DIABETES MELLITUS
  14. AVEED [Suspect]
     Active Substance: TESTOSTERONE UNDECANOATE
     Dosage: UNK, ONCE
     Route: 030
     Dates: start: 20150527
  15. AVEED [Suspect]
     Active Substance: TESTOSTERONE UNDECANOATE
     Dosage: UNK, ONCE
     Route: 030
     Dates: start: 20170215
  16. IBUPROFEN TABLETS 200MG [Concomitant]
     Active Substance: IBUPROFEN
     Indication: PRODUCT USED FOR UNKNOWN INDICATION
  17. VIAGRA [Concomitant]
     Active Substance: SILDENAFIL CITRATE
     Indication: ERECTILE DYSFUNCTION

REACTIONS (2)
  - Drug ineffective [Unknown]
  - Pulmonary oil microembolism [Recovered/Resolved]

NARRATIVE: CASE EVENT DATE: 20151019
